FAERS Safety Report 23562554 (Version 1)
Quarter: 2024Q1

REPORT INFORMATION
  Report Type: Spontaneous
  Country: US (occurrence: US)
  Receive Date: 20240226
  Receipt Date: 20240226
  Transmission Date: 20240410
  Serious: No
  Sender: FDA-Public Use
  Company Number: US-SA-SAC20240219001164

PATIENT
  Age: 64 Year
  Sex: Female
  Weight: 58.9 kg

DRUGS (7)
  1. DUPIXENT [Suspect]
     Active Substance: DUPILUMAB
     Indication: Dermatitis atopic
     Dosage: 300MG QOW
     Route: 058
  2. PARAFFIN [Concomitant]
     Active Substance: PARAFFIN
  3. WORMWOOD [Concomitant]
     Active Substance: WORMWOOD
  4. BENADRYL [Concomitant]
     Active Substance: DIPHENHYDRAMINE HYDROCHLORIDE
  5. ZYRTEC [Concomitant]
     Active Substance: CETIRIZINE HYDROCHLORIDE
  6. FLONASE ALLERGY RELIEF [Concomitant]
     Active Substance: FLUTICASONE PROPIONATE
  7. HYDROCORTISONE [Concomitant]
     Active Substance: HYDROCORTISONE

REACTIONS (6)
  - Nasopharyngitis [Unknown]
  - Illness [Unknown]
  - Somnolence [Unknown]
  - Abdominal distension [Unknown]
  - Weight decreased [Unknown]
  - Injection site pain [Unknown]

NARRATIVE: CASE EVENT DATE: 20240101
